FAERS Safety Report 25842278 (Version 1)
Quarter: 2025Q3

REPORT INFORMATION
  Report Type: Spontaneous
  Country: US (occurrence: None)
  Receive Date: 20250924
  Receipt Date: 20250924
  Transmission Date: 20251021
  Serious: Yes (Hospitalization)
  Sender: FDA-CTU
  Company Number: None

PATIENT
  Age: 31 Year
  Sex: Female
  Weight: 47.25 kg

DRUGS (6)
  1. CLOBAZAM [Suspect]
     Active Substance: CLOBAZAM
     Indication: Epilepsy
     Route: 048
  2. VNS device Vimpat [Concomitant]
  3. BRIVIACT [Concomitant]
     Active Substance: BRIVARACETAM
  4. oral contraception [Concomitant]
  5. Daily multi vitamin [Concomitant]
  6. SACCHAROMYCES CEREVISIAE [Concomitant]
     Active Substance: SACCHAROMYCES CEREVISIAE

REACTIONS (1)
  - Urinary retention [None]

NARRATIVE: CASE EVENT DATE: 20250923
